FAERS Safety Report 7081166-4 (Version None)
Quarter: 2010Q4

REPORT INFORMATION
  Report Type: 
  Country: None (occurrence: None)
  Receive Date: 20101103
  Receipt Date: 20101026
  Transmission Date: 20110411
  Serious: Yes (Other)
  Sender: FDA-Public Use
  Company Number: B0682561A

PATIENT
  Age: 84 Year
  Sex: Male

DRUGS (2)
  1. AUGMENTIN '125' [Suspect]
     Dosage: 1TAB PER DAY
     Route: 065
     Dates: start: 20101018, end: 20101018
  2. ASPIRIN [Concomitant]
     Route: 065

REACTIONS (6)
  - BURNING SENSATION [None]
  - ERYTHEMA [None]
  - LOSS OF CONSCIOUSNESS [None]
  - MALAISE [None]
  - PRURITUS [None]
  - SKIN BURNING SENSATION [None]
